FAERS Safety Report 21818426 (Version 1)
Quarter: 2023Q1

REPORT INFORMATION
  Report Type: Spontaneous
  Country: US (occurrence: US)
  Receive Date: 20230104
  Receipt Date: 20230104
  Transmission Date: 20230418
  Serious: Yes (Other)
  Sender: FDA-Public Use
  Company Number: US-COOPERSURGICAL, INC.-US-2022CPS003055

PATIENT
  Age: 25 Year
  Sex: Female
  Weight: 63.946 kg

DRUGS (1)
  1. PARAGARD T 380A [Suspect]
     Active Substance: COPPER
     Indication: Product used for unknown indication
     Dosage: UNK
     Route: 015

REACTIONS (5)
  - Uterine perforation [Unknown]
  - Procedural pain [Unknown]
  - Complication of device insertion [Unknown]
  - Post-traumatic stress disorder [Unknown]
  - Device placement issue [Unknown]

NARRATIVE: CASE EVENT DATE: 20220815
